FAERS Safety Report 14770909 (Version 1)
Quarter: 2018Q2

REPORT INFORMATION
  Report Type: Spontaneous
  Country: US (occurrence: US)
  Receive Date: 20180417
  Receipt Date: 20180417
  Transmission Date: 20180711
  Serious: No
  Sender: FDA-Public Use
  Company Number: US-ALLERGAN-1712898US

PATIENT
  Age: 62 Year
  Sex: Female
  Weight: 65.76 kg

DRUGS (4)
  1. MASCARA [Concomitant]
  2. LATISSE [Suspect]
     Active Substance: BIMATOPROST
     Indication: GROWTH OF EYELASHES
     Dosage: 2 GTT, QHS
     Route: 061
     Dates: start: 2014
  3. PROGESTERONE. [Concomitant]
     Active Substance: PROGESTERONE
     Route: 048
  4. ESTROGEN [Concomitant]
     Active Substance: ESTROGENS
     Route: 048

REACTIONS (1)
  - Madarosis [Not Recovered/Not Resolved]

NARRATIVE: CASE EVENT DATE: 201703
